FAERS Safety Report 20730975 (Version 1)
Quarter: 2022Q2

REPORT INFORMATION
  Report Type: Spontaneous
  Country: US (occurrence: None)
  Receive Date: 20220420
  Receipt Date: 20220420
  Transmission Date: 20220720
  Serious: Yes (Other)
  Sender: FDA-Public Use
  Company Number: None

PATIENT
  Age: 43 Year
  Sex: Female
  Weight: 72 kg

DRUGS (1)
  1. SAXENDA [Suspect]
     Active Substance: LIRAGLUTIDE
     Indication: Diabetes mellitus
     Dosage: OTHER QUANTITY : 1 INJECTION(S);?FREQUENCY : DAILY;?OTHER ROUTE : INJECTED IN STOMACH;?
     Route: 050

REACTIONS (1)
  - Adverse drug reaction [None]

NARRATIVE: CASE EVENT DATE: 20211217
